FAERS Safety Report 17913260 (Version 1)
Quarter: 2020Q2

REPORT INFORMATION
  Report Type: Spontaneous
  Country: US (occurrence: US)
  Receive Date: 20200618
  Receipt Date: 20200618
  Transmission Date: 20200714
  Serious: Yes (Other)
  Sender: FDA-Public Use
  Company Number: US-ASTRAZENECA-2020SE75572

PATIENT
  Sex: Female

DRUGS (9)
  1. MULTI VIT [Concomitant]
     Active Substance: VITAMINS
  2. FARXIGA [Suspect]
     Active Substance: DAPAGLIFLOZIN PROPANEDIOL
     Indication: DIABETES MELLITUS
     Route: 048
     Dates: end: 202005
  3. METOPROLOL. [Suspect]
     Active Substance: METOPROLOL
     Route: 065
  4. LISINOPRIL. [Concomitant]
     Active Substance: LISINOPRIL
  5. HYDROCHOLROTHIAZIDE [Concomitant]
  6. BABY ASPIRIN [Concomitant]
     Active Substance: ASPIRIN
  7. PHENTERMINE. [Concomitant]
     Active Substance: PHENTERMINE
  8. EZETIMIVE [Concomitant]
  9. CALCIUM WITH VIT D [Concomitant]

REACTIONS (8)
  - Back pain [Not Recovered/Not Resolved]
  - Body temperature abnormal [Recovered/Resolved]
  - Urinary tract infection [Recovered/Resolved]
  - Fungal infection [Recovered/Resolved]
  - Glucose urine present [Unknown]
  - Blood glucose increased [Recovered/Resolved]
  - Diarrhoea [Recovered/Resolved]
  - Renal disorder [Unknown]
